FAERS Safety Report 8001933-X (Version None)
Quarter: 2011Q4

REPORT INFORMATION
  Report Type: 
  Country: None (occurrence: None)
  Receive Date: 20111222
  Receipt Date: 20111219
  Transmission Date: 20120403
  Serious: Yes (Death)
  Sender: FDA-Public Use
  Company Number: US-PFIZER INC-2011310215

PATIENT
  Age: 45 Year
  Sex: Male

DRUGS (7)
  1. DULOXETIME HYDROCHLORIDE [Suspect]
  2. AMLODIPINE AND ATORVASTATIN [Suspect]
     Dosage: UNK
     Route: 048
  3. LISINOPRIL [Suspect]
  4. QUETIAPINE FUMARATE [Suspect]
  5. DIAZEPAM [Suspect]
  6. VALPROIC ACID [Suspect]
  7. ESOMEPRAZOLE [Suspect]

REACTIONS (1)
  - COMPLETED SUICIDE [None]
